FAERS Safety Report 24602997 (Version 1)
Quarter: 2024Q4

REPORT INFORMATION
  Report Type: Spontaneous
  Country: CA (occurrence: CA)
  Receive Date: 20241111
  Receipt Date: 20241111
  Transmission Date: 20250114
  Serious: Yes (Life-Threatening, Hospitalization, Other)
  Sender: PFIZER
  Company Number: CA-PFIZER INC-202400295695

PATIENT
  Age: 34 Year
  Sex: Male

DRUGS (5)
  1. CISPLATIN [Suspect]
     Active Substance: CISPLATIN
     Indication: Haematological malignancy
     Dosage: 159 MG, CYCLIC
     Route: 042
  2. GEMCITABINE HYDROCHLORIDE [Suspect]
     Active Substance: GEMCITABINE HYDROCHLORIDE
     Indication: Haematological malignancy
     Dosage: 2120 MG, CYCLIC
     Route: 042
  3. DEXAMETHASONE [Suspect]
     Active Substance: DEXAMETHASONE
     Indication: Haematological malignancy
     Dosage: 20 MG, CYCLIC
     Route: 048
  4. LANSOPRAZOLE [Concomitant]
     Active Substance: LANSOPRAZOLE
  5. RIZATRIPTAN [Concomitant]
     Active Substance: RIZATRIPTAN

REACTIONS (4)
  - Aphasia [Unknown]
  - Cerebrovascular accident [Unknown]
  - Confusional state [Unknown]
  - Muscular weakness [Unknown]
